FAERS Safety Report 5220835-5 (Version None)
Quarter: 2007Q1

REPORT INFORMATION
  Report Type: 
  Country: None (occurrence: None)
  Receive Date: 20070123
  Receipt Date: 20070111
  Transmission Date: 20070707
  Serious: Yes (Life-Threatening, Hospitalization)
  Sender: FDA-Public Use
  Company Number: SEWYE148115JAN07

PATIENT
  Age: 64 Year
  Sex: Male

DRUGS (1)
  1. EFFEXOR [Suspect]
     Indication: DEPRESSION
     Dosage: 225 MG DAILY
     Route: 048
     Dates: start: 20010601, end: 20061115

REACTIONS (5)
  - ACUTE HEPATIC FAILURE [None]
  - ANTIDEPRESSANT DRUG LEVEL INCREASED [None]
  - COMA HEPATIC [None]
  - DIABETES MELLITUS [None]
  - ENZYME ABNORMALITY [None]
